FAERS Safety Report 14029226 (Version 3)
Quarter: 2019Q3

REPORT INFORMATION
  Report Type: Report from Study
  Country: US (occurrence: US)
  Receive Date: 20170930
  Receipt Date: 20190722
  Transmission Date: 20191004
  Serious: No
  Sender: FDA-Public Use
  Company Number: US-SA-2017SA085238

PATIENT
  Age: 56 Year
  Sex: Female

DRUGS (8)
  1. TERIFLUNOMIDE. [Suspect]
     Active Substance: TERIFLUNOMIDE
     Indication: MULTIPLE SCLEROSIS
     Dosage: 14 MG, QD
     Route: 048
     Dates: start: 20170311
  2. TECFIDERA [Concomitant]
     Active Substance: DIMETHYL FUMARATE
     Dosage: UNK
  3. ZOLPIDEM [Concomitant]
     Active Substance: ZOLPIDEM TARTRATE
     Dosage: 10 MG,UNK
     Dates: start: 20160610
  4. FISH OIL [Concomitant]
     Active Substance: FISH OIL
     Dosage: 1000 MG,UNK
     Dates: start: 20160516
  5. XANTOFYL [Concomitant]
     Dosage: DOSE: 15-0.7 MG
     Dates: start: 20160516
  6. COENZYME Q10 [Concomitant]
     Active Substance: UBIDECARENONE
     Dosage: 100 MG,UNK
     Dates: start: 20160610
  7. CALCIUM [Concomitant]
     Active Substance: CALCIUM
     Dosage: 600 MG,UNK
     Dates: start: 20160516
  8. ACETYLSALICYLIC ACID [Concomitant]
     Active Substance: ASPIRIN
     Dosage: 81 MG,UNK
     Dates: start: 20160516

REACTIONS (2)
  - Cough [Unknown]
  - Paraesthesia [Recovered/Resolved]

NARRATIVE: CASE EVENT DATE: 201703
